FAERS Safety Report 18087905 (Version 1)
Quarter: 2020Q3

REPORT INFORMATION
  Report Type: Report from Study
  Country: IL (occurrence: IL)
  Receive Date: 20200729
  Receipt Date: 20200729
  Transmission Date: 20201103
  Serious: Yes (Hospitalization, Other)
  Sender: FDA-Public Use
  Company Number: PHHY2019IL020286

PATIENT
  Age: 4 Year
  Sex: Male
  Weight: 13.2 kg

DRUGS (4)
  1. TRAMETINIB [Suspect]
     Active Substance: TRAMETINIB
     Dosage: 0.38 MG, UNK
     Route: 048
     Dates: start: 20190117
  2. TRAMETINIB [Suspect]
     Active Substance: TRAMETINIB
     Dosage: 0.38 MG, UNK
     Route: 048
     Dates: start: 20190106
  3. TRAMETINIB [Suspect]
     Active Substance: TRAMETINIB
     Dosage: 0.38 MG, UNK
     Route: 048
     Dates: start: 20190207
  4. TRAMETINIB [Suspect]
     Active Substance: TRAMETINIB
     Indication: ASTROCYTOMA, LOW GRADE
     Dosage: 0.38 MG, UNK
     Route: 048
     Dates: start: 20190103

REACTIONS (3)
  - Blood creatine phosphokinase increased [Not Recovered/Not Resolved]
  - Pyrexia [Recovered/Resolved]
  - Blood lactate dehydrogenase increased [Recovered/Resolved]

NARRATIVE: CASE EVENT DATE: 20190117
